FAERS Safety Report 6168364-9 (Version None)
Quarter: 2009Q2

REPORT INFORMATION
  Report Type: 
  Country: None (occurrence: None)
  Receive Date: 20090423
  Receipt Date: 20090414
  Transmission Date: 20091009
  Serious: No
  Sender: FDA-Public Use
  Company Number: 20096206

PATIENT
  Sex: Male

DRUGS (1)
  1. LIORESAL [Suspect]
     Indication: MUSCLE SPASTICITY
     Dosage: 659 MCG DAILY,  INTRATHECAL
     Route: 037

REACTIONS (9)
  - COMMUNICATION DISORDER [None]
  - CONVULSION [None]
  - DRUG DOSE OMISSION [None]
  - DRUG WITHDRAWAL SYNDROME [None]
  - HYPERHIDROSIS [None]
  - HYPERTONIA [None]
  - MUSCLE SPASTICITY [None]
  - SPEECH DISORDER [None]
  - TACHYCARDIA [None]
